FAERS Safety Report 4822159-4 (Version None)
Quarter: 2005Q4

REPORT INFORMATION
  Report Type: 
  Country: None (occurrence: None)
  Receive Date: 20051103
  Receipt Date: 20051025
  Transmission Date: 20060501
  Serious: Yes (Hospitalization, Other)
  Sender: FDA-Public Use
  Company Number: US-2005-020404

PATIENT
  Age: 58 Year
  Sex: Female
  Weight: 84.4 kg

DRUGS (3)
  1. MAGNEVIST [Suspect]
     Indication: NUCLEAR MAGNETIC RESONANCE IMAGING ABDOMINAL
     Dosage: 20 ML 1 DOSE, INTRAVENOUS
     Route: 042
     Dates: start: 20050830, end: 20050830
  2. INDERAL LA [Concomitant]
  3. ALLEGRA [Concomitant]

REACTIONS (9)
  - ANAPHYLACTIC REACTION [None]
  - ATELECTASIS [None]
  - BLOOD GLUCOSE INCREASED [None]
  - CONTRAST MEDIA REACTION [None]
  - DYSPHAGIA [None]
  - KETONURIA [None]
  - PARAESTHESIA ORAL [None]
  - SPEECH DISORDER [None]
  - THROAT TIGHTNESS [None]
